FAERS Safety Report 8174650-3 (Version None)
Quarter: 2012Q1

REPORT INFORMATION
  Report Type: 
  Country: None (occurrence: None)
  Receive Date: 20120229
  Receipt Date: 20120217
  Transmission Date: 20120608
  Serious: Yes (Hospitalization, Other)
  Sender: FDA-Public Use
  Company Number: US-ELI_LILLY_AND_COMPANY-US201107001786

PATIENT
  Sex: Female
  Weight: 43 kg

DRUGS (13)
  1. VITAMIN D [Concomitant]
     Dosage: UNK, QD
  2. FORTEO [Suspect]
     Indication: OSTEOPOROSIS
     Dosage: 20 UG, QD
     Route: 065
     Dates: start: 20110201
  3. MULTI-VITAMINS [Concomitant]
  4. CALTRATE                           /00944201/ [Concomitant]
  5. CALCIUM [Concomitant]
  6. LOMEXIN [Concomitant]
  7. TOPROL-XL [Concomitant]
     Dosage: UNK, QD
  8. LEXAPRO [Concomitant]
     Dosage: UNK, QD
  9. GLUCOSAMINE [Concomitant]
  10. VITAMIN E [Concomitant]
     Dosage: UNK, QD
  11. ASCORBIC ACID [Concomitant]
     Dosage: UNK, QD
  12. FISH OIL [Concomitant]
     Dosage: UNK, QD
  13. ASPIRIN [Concomitant]
     Dosage: UNK, QD

REACTIONS (3)
  - FALL [None]
  - BLOOD CALCIUM INCREASED [None]
  - FEMORAL NECK FRACTURE [None]
